FAERS Safety Report 9834260 (Version 1)
Quarter: 2014Q1

REPORT INFORMATION
  Report Type: Spontaneous
  Country: FR (occurrence: FR)
  Receive Date: 20140122
  Receipt Date: 20140122
  Transmission Date: 20141002
  Serious: Yes (Hospitalization)
  Sender: FDA-Public Use
  Company Number: FR-US-EMD SERONO, INC.-7263143

PATIENT
  Age: 23 Year
  Sex: Female

DRUGS (4)
  1. GONAL-F [Suspect]
     Indication: IN VITRO FERTILISATION
     Dosage: 900 IU/1.5 ML, SOLUTION FOR INJECTION IN PREFILLED PEN
     Route: 058
     Dates: start: 20130610
  2. GONAL-F [Suspect]
     Dosage: 900 IU/1.5 ML, SOLUTION FOR INJECTION IN PREFILLED PEN
     Route: 058
  3. GONAL-F [Suspect]
     Dosage: 900 IU/1.5 ML, SOLUTION FOR INJECTION IN PREFILLED PEN
     Route: 058
     Dates: end: 20130619
  4. ORGALUTRAN /01453701/ [Suspect]
     Indication: IN VITRO FERTILISATION
     Dosage: 0.25 MG/0.5 ML, SOLUTION FOR INJECTION
     Route: 058
     Dates: start: 20130614, end: 20130619

REACTIONS (2)
  - Haematocrit increased [Recovered/Resolved]
  - Ovarian hyperstimulation syndrome [Recovered/Resolved]
